FAERS Safety Report 9127514 (Version 1)
Quarter: 2013Q1

REPORT INFORMATION
  Report Type: Spontaneous
  Country: US (occurrence: US)
  Receive Date: 20130228
  Receipt Date: 20130228
  Transmission Date: 20140127
  Serious: No
  Sender: FDA-Public Use
  Company Number: US-GLAXOSMITHKLINE-A0980964A

PATIENT
  Age: 66 Year
  Sex: Female

DRUGS (3)
  1. LAMOTRIGINE [Suspect]
     Indication: BIPOLAR DISORDER
     Dosage: 25MG PER DAY
     Route: 048
     Dates: start: 201106
  2. CRESTOR [Concomitant]
  3. ZOLOFT [Concomitant]

REACTIONS (5)
  - Drug ineffective [Not Recovered/Not Resolved]
  - Paraesthesia [Unknown]
  - Muscle spasms [Unknown]
  - Back pain [Unknown]
  - Headache [Unknown]
